FAERS Safety Report 6336664-5 (Version None)
Quarter: 2009Q3

REPORT INFORMATION
  Report Type: 
  Country: None (occurrence: None)
  Receive Date: 20090901
  Receipt Date: 20090828
  Transmission Date: 20100115
  Serious: Yes (Hospitalization)
  Sender: FDA-Public Use
  Company Number: IT-BRISTOL-MYERS SQUIBB COMPANY-14727325

PATIENT
  Age: 78 Year
  Sex: Female

DRUGS (8)
  1. COUMADIN [Suspect]
     Indication: MYOCARDIAL INFARCTION
     Dosage: INTERRUPTED ON 06JUL09
     Route: 048
     Dates: start: 20090706
  2. CARVEDILOL [Concomitant]
  3. RAMIPRIL [Concomitant]
  4. ZYLORIC [Concomitant]
  5. LASIX [Concomitant]
  6. NOVONORM [Concomitant]
  7. ESKIM [Concomitant]
  8. LANOXIN [Concomitant]

REACTIONS (2)
  - HEAD INJURY [None]
  - SUBARACHNOID HAEMORRHAGE [None]
